FAERS Safety Report 5136429-6 (Version None)
Quarter: 2006Q4

REPORT INFORMATION
  Report Type: 
  Country: None (occurrence: None)
  Receive Date: 20061027
  Receipt Date: 20051115
  Transmission Date: 20070319
  Serious: No
  Sender: FDA-Public Use
  Company Number: US-BRISTOL-MYERS SQUIBB COMPANY-13181177

PATIENT
  Age: 78 Year
  Sex: Female
  Weight: 91 kg

DRUGS (3)
  1. KENALOG-40 [Suspect]
     Route: 014
     Dates: start: 20051101, end: 20051101
  2. METHOTREXATE SODIUM [Concomitant]
  3. PREDNISONE TAB [Concomitant]

REACTIONS (4)
  - FLUSHING [None]
  - INTRAOCULAR PRESSURE INCREASED [None]
  - VISION BLURRED [None]
  - VISUAL ACUITY REDUCED [None]
